FAERS Safety Report 14836004 (Version 1)
Quarter: 2018Q2

REPORT INFORMATION
  Report Type: Spontaneous
  Country: BR (occurrence: BR)
  Receive Date: 20180502
  Receipt Date: 20180502
  Transmission Date: 20180711
  Serious: Yes (Life-Threatening, Hospitalization, Other)
  Sender: FDA-Public Use
  Company Number: BR-B.I. PHARMACEUTICALS,INC./RIDGEFIELD-2018-BI-023436

PATIENT
  Sex: Female
  Weight: 67 kg

DRUGS (2)
  1. ATENSINA [Suspect]
     Active Substance: CLONIDINE
     Indication: HYPERTENSION
     Route: 048
     Dates: start: 201803
  2. ATENSINA [Suspect]
     Active Substance: CLONIDINE
     Route: 048
     Dates: start: 20180427

REACTIONS (8)
  - Blood pressure measurement [Recovered/Resolved]
  - Drug effect incomplete [Recovered/Resolved]
  - Feeling abnormal [Not Recovered/Not Resolved]
  - Psychiatric symptom [Not Recovered/Not Resolved]
  - Delirium [Not Recovered/Not Resolved]
  - Somnolence [Not Recovered/Not Resolved]
  - Breath holding [Unknown]
  - Cyanosis [Unknown]

NARRATIVE: CASE EVENT DATE: 201803
